FAERS Safety Report 25378335 (Version 2)
Quarter: 2025Q2

REPORT INFORMATION
  Report Type: Report from Study
  Country: US (occurrence: US)
  Receive Date: 20250530
  Receipt Date: 20250609
  Transmission Date: 20250717
  Serious: Yes (Other)
  Sender: ABBVIE
  Company Number: US-ABBVIE-6301278

PATIENT
  Sex: Female

DRUGS (1)
  1. QULIPTA [Suspect]
     Active Substance: ATOGEPANT
     Indication: Product used for unknown indication
     Route: 048
     Dates: start: 20220610

REACTIONS (9)
  - Breast cancer [Unknown]
  - Cerebrovascular accident [Unknown]
  - Fibromyalgia [Unknown]
  - Diabetes mellitus [Unknown]
  - Stress [Unknown]
  - Skin mass [Unknown]
  - Memory impairment [Unknown]
  - Ostectomy [Unknown]
  - Tendon transfer [Unknown]
